FAERS Safety Report 24219034 (Version 1)
Quarter: 2024Q3

REPORT INFORMATION
  Report Type: Spontaneous
  Country: US (occurrence: US)
  Receive Date: 20240816
  Receipt Date: 20240816
  Transmission Date: 20241017
  Serious: No
  Sender: SANOFI AVENTIS
  Company Number: US-SA-SAC20240816000328

PATIENT
  Age: 64 Year
  Sex: Male
  Weight: 85.27 kg

DRUGS (4)
  1. DUPIXENT [Suspect]
     Active Substance: DUPILUMAB
     Indication: Dermatitis atopic
     Dosage: 600 MG, 1X
     Route: 058
     Dates: start: 20240730, end: 20240730
  2. CLOBETASOL [Concomitant]
     Active Substance: CLOBETASOL
  3. TRIAMCINOLONE ACETONIDE [Concomitant]
     Active Substance: TRIAMCINOLONE ACETONIDE
  4. ATORVASTATIN CALCIUM [Concomitant]
     Active Substance: ATORVASTATIN CALCIUM

REACTIONS (1)
  - Injection site erythema [Recovered/Resolved]

NARRATIVE: CASE EVENT DATE: 20240101
